FAERS Safety Report 6638131-8 (Version None)
Quarter: 2010Q1

REPORT INFORMATION
  Report Type: 
  Country: None (occurrence: None)
  Receive Date: 20100317
  Receipt Date: 20100308
  Transmission Date: 20100710
  Serious: Yes (Hospitalization)
  Sender: FDA-Public Use
  Company Number: US-ALEXION-A201000159

PATIENT
  Sex: Female

DRUGS (2)
  1. ECULIZUMAB [Suspect]
     Indication: PAROXYSMAL NOCTURNAL HAEMOGLOBINURIA
     Dosage: UNK
     Dates: start: 20100211
  2. PROVERA [Concomitant]
     Indication: MENORRHAGIA
     Dosage: 10 MG, QD
     Route: 048

REACTIONS (1)
  - PETECHIAE [None]
